FAERS Safety Report 5944656-0 (Version None)
Quarter: 2008Q4

REPORT INFORMATION
  Report Type: 
  Country: None (occurrence: None)
  Receive Date: 20081105
  Receipt Date: 20081026
  Transmission Date: 20090506
  Serious: Yes (Hospitalization, Other)
  Sender: FDA-Public Use
  Company Number: 2007SP011142

PATIENT
  Age: 65 Year
  Sex: Female

DRUGS (2)
  1. PEG-INTRON [Suspect]
     Indication: HEPATITIS C
     Dosage: SC
     Route: 058
     Dates: start: 20070308, end: 20070601
  2. RIBAVIRIN [Suspect]
     Indication: HEPATITIS C
     Dosage: PO
     Route: 048
     Dates: start: 20070308, end: 20070601

REACTIONS (20)
  - ABDOMINAL PAIN [None]
  - ANAEMIA [None]
  - BLOOD PRESSURE DECREASED [None]
  - BONE MARROW DISORDER [None]
  - CATHETER SITE HAEMATOMA [None]
  - CATHETER SITE SWELLING [None]
  - CHEST PAIN [None]
  - COLITIS [None]
  - DIABETES MELLITUS [None]
  - DYSPNOEA [None]
  - ERUCTATION [None]
  - GASTROOESOPHAGEAL REFLUX DISEASE [None]
  - HAEMORRHAGE [None]
  - MALIGNANT SPLENIC NEOPLASM [None]
  - NAUSEA [None]
  - NEUROPATHY PERIPHERAL [None]
  - PLATELET COUNT DECREASED [None]
  - POST PROCEDURAL HAEMORRHAGE [None]
  - PYREXIA [None]
  - WHITE BLOOD CELL COUNT DECREASED [None]
